FAERS Safety Report 8120876-4 (Version None)
Quarter: 2012Q1

REPORT INFORMATION
  Report Type: 
  Country: None (occurrence: None)
  Receive Date: 20120203
  Receipt Date: 20120124
  Transmission Date: 20120608
  Serious: Yes (Hospitalization, Other)
  Sender: FDA-Public Use
  Company Number: 2012P1003215

PATIENT
  Age: 50 Year
  Sex: Male

DRUGS (5)
  1. LITHIUM CARBONATE [Suspect]
     Indication: BIPOLAR DISORDER
     Dosage: 450 MG;BID ; 450 MG;BID
     Dates: start: 20100101, end: 20120108
  2. LITHIUM CARBONATE [Suspect]
     Indication: BIPOLAR DISORDER
     Dosage: 450 MG;BID ; 450 MG;BID
     Dates: start: 20120123
  3. PROTONIX [Concomitant]
  4. LITHIUM CARBONATE [Suspect]
     Indication: BIPOLAR DISORDER
     Dosage: 450 MG;BID ; 450 MG;BID
     Dates: start: 20120101, end: 20120122
  5. LITHIUM CARBONATE [Suspect]
     Indication: BIPOLAR DISORDER
     Dosage: 450 MG;BID ; 450 MG;BID
     Dates: start: 20120109, end: 20120112

REACTIONS (4)
  - MANIA [None]
  - DIZZINESS [None]
  - PRODUCT SUBSTITUTION ISSUE [None]
  - HEADACHE [None]
